FAERS Safety Report 24922407 (Version 1)
Quarter: 2025Q1

REPORT INFORMATION
  Report Type: Spontaneous
  Country: IN (occurrence: IN)
  Receive Date: 20250204
  Receipt Date: 20250204
  Transmission Date: 20250409
  Serious: Yes (Other)
  Sender: AMGEN
  Company Number: IN-AMGEN-INDSP2025018560

PATIENT

DRUGS (7)
  1. FILGRASTIM [Suspect]
     Active Substance: FILGRASTIM
     Indication: Prophylaxis
     Route: 065
  2. PEGFILGRASTIM [Suspect]
     Active Substance: PEGFILGRASTIM
     Indication: Prophylaxis
     Route: 065
  3. VINCRISTINE [Concomitant]
     Active Substance: VINCRISTINE
  4. DOXORUBICIN [Concomitant]
     Active Substance: DOXORUBICIN
  5. CYCLOPHOSPHAMIDE [Concomitant]
     Active Substance: CYCLOPHOSPHAMIDE
     Route: 065
  6. IFOSFAMIDE [Concomitant]
     Active Substance: IFOSFAMIDE
  7. ETOPOSIDE [Concomitant]
     Active Substance: ETOPOSIDE

REACTIONS (1)
  - Ewing^s sarcoma recurrent [Unknown]
